FAERS Safety Report 4279697-5 (Version None)
Quarter: 2004Q1

REPORT INFORMATION
  Report Type: 
  Country: None (occurrence: None)
  Receive Date: 20040122
  Receipt Date: 20040109
  Transmission Date: 20041129
  Serious: Yes (Hospitalization)
  Sender: FDA-Public Use
  Company Number: 2004001334

PATIENT
  Sex: Male

DRUGS (6)
  1. SERLAIN (SERTRALINE) [Suspect]
     Indication: DEPRESSION
     Dosage: 50 MG (DAILY), ORAL
     Route: 048
     Dates: end: 20031223
  2. METHYLPREDNISOLONE [Concomitant]
  3. RISPERIDONE [Concomitant]
  4. FOLIC ACID [Concomitant]
  5. LACTULOSE [Concomitant]
  6. SERETIDE MITE (FLUTICASONE PROPIONATE, SALMETEROL XINAFOATE) [Concomitant]

REACTIONS (4)
  - ACTIVATED PARTIAL THROMBOPLASTIN TIME PROLONGED [None]
  - HAEMATOMA [None]
  - HAEMOGLOBIN DECREASED [None]
  - PETECHIAE [None]
